FAERS Safety Report 18186566 (Version 4)
Quarter: 2020Q4

REPORT INFORMATION
  Report Type: Spontaneous
  Country: US (occurrence: US)
  Receive Date: 20200824
  Receipt Date: 20201217
  Transmission Date: 20210113
  Serious: Yes (Other)
  Sender: FDA-Public Use
  Company Number: US-CELLTRION INC.-2020US022262

PATIENT

DRUGS (1)
  1. INFLECTRA [Suspect]
     Active Substance: INFLIXIMAB-DYYB
     Indication: ANKYLOSING SPONDYLITIS
     Dosage: 500 ML, CYCLIC  (EVERY 5 WEEKS)
     Route: 065

REACTIONS (12)
  - Product dose omission issue [Unknown]
  - Condition aggravated [Unknown]
  - Uveitis [Unknown]
  - Off label use [Unknown]
  - Steroid therapy [Unknown]
  - Eye drop instillation [Unknown]
  - Blindness [Unknown]
  - Malaise [Unknown]
  - Disease recurrence [Unknown]
  - Pain [Unknown]
  - Product dose omission issue [Unknown]
  - Product distribution issue [Unknown]

NARRATIVE: CASE EVENT DATE: 20201005
